FAERS Safety Report 11382815 (Version 2)
Quarter: 2015Q3

REPORT INFORMATION
  Report Type: Spontaneous
  Country: US (occurrence: US)
  Receive Date: 20150814
  Receipt Date: 20150817
  Transmission Date: 20151125
  Serious: Yes (Other)
  Sender: FDA-Public Use
  Company Number: US-PFIZER INC-2015265934

PATIENT
  Age: 55 Year
  Sex: Male
  Weight: 55.33 kg

DRUGS (12)
  1. LIPITOR [Concomitant]
     Active Substance: ATORVASTATIN CALCIUM
     Indication: BLOOD CHOLESTEROL ABNORMAL
     Dosage: 80 MG, UNK
  2. LAMICTAL [Suspect]
     Active Substance: LAMOTRIGINE
     Dosage: UNK
  3. LAMOTRIGINE. [Concomitant]
     Active Substance: LAMOTRIGINE
     Dosage: 200 MG, 1X/DAY
  4. ASPIRIN. [Concomitant]
     Active Substance: ASPIRIN
     Dosage: 81 MG, THREE TIMES A WEEK
  5. SYMBICORT [Concomitant]
     Active Substance: BUDESONIDE\FORMOTEROL FUMARATE DIHYDRATE
     Indication: CHRONIC OBSTRUCTIVE PULMONARY DISEASE
     Dosage: UNK, BUDESONIDE (160), FORMOTEROL FUMARATE (4.5)
  6. FLONASE [Concomitant]
     Active Substance: FLUTICASONE PROPIONATE
  7. XANAX [Suspect]
     Active Substance: ALPRAZOLAM
     Dosage: 2 MG, UNK
  8. NORTRIPTYLINE [Concomitant]
     Active Substance: NORTRIPTYLINE
     Dosage: 25 MG, 1X/DAY (TAKEN AT NIGHT)
  9. NEURONTIN [Suspect]
     Active Substance: GABAPENTIN
     Dosage: 100 MG, 3X/DAY
     Route: 048
     Dates: start: 20150724
  10. INDOMETHACIN. [Concomitant]
     Active Substance: INDOMETHACIN
     Indication: INFLAMMATION
     Dosage: UNK
  11. HYDROCODONE [Concomitant]
     Active Substance: HYDROCODONE
     Indication: PAIN
     Dosage: 5 MG, AS NEEDED
  12. ZETIA [Concomitant]
     Active Substance: EZETIMIBE
     Indication: BLOOD CHOLESTEROL ABNORMAL
     Dosage: 10 MG, UNK

REACTIONS (13)
  - Skin exfoliation [Not Recovered/Not Resolved]
  - Disturbance in attention [Unknown]
  - Eye disorder [Unknown]
  - Nasal congestion [Unknown]
  - Headache [Unknown]
  - Dyspnoea [Unknown]
  - Blood cholesterol abnormal [Unknown]
  - Blister [Not Recovered/Not Resolved]
  - Vision blurred [Unknown]
  - Rash [Not Recovered/Not Resolved]
  - Skin discolouration [Unknown]
  - Purpura [Not Recovered/Not Resolved]
  - Muscle twitching [Unknown]
